FAERS Safety Report 4767374-3 (Version None)
Quarter: 2005Q3

REPORT INFORMATION
  Report Type: 
  Country: None (occurrence: None)
  Receive Date: 20050913
  Receipt Date: 20050705
  Transmission Date: 20060218
  Serious: Yes (Hospitalization)
  Sender: FDA-Public Use
  Company Number: BR-ROCHE-409821

PATIENT
  Age: 79 Year
  Sex: Female
  Weight: 56 kg

DRUGS (3)
  1. CAPECITABINE [Suspect]
     Route: 065
     Dates: start: 20050616
  2. BEVACIZUMAB [Suspect]
     Route: 042
     Dates: start: 20050616
  3. OXALIPLATIN [Suspect]
     Route: 042
     Dates: start: 20050616

REACTIONS (5)
  - BLOOD SODIUM DECREASED [None]
  - CONFUSIONAL STATE [None]
  - DIARRHOEA [None]
  - HYPONATRAEMIA [None]
  - MUCOSAL INFLAMMATION [None]
